FAERS Safety Report 8449972 (Version 4)
Quarter: 2013Q1

REPORT INFORMATION
  Report Type: Spontaneous
  Country: US (occurrence: US)
  Receive Date: 20120309
  Receipt Date: 20130117
  Transmission Date: 20140127
  Serious: Yes (Other)
  Sender: FDA-Public Use
  Company Number: US-JNJFOC-20120213892

PATIENT
  Age: 59 None
  Sex: Female
  Weight: 66.68 kg

DRUGS (15)
  1. REMICADE [Suspect]
     Indication: PSORIATIC ARTHROPATHY
     Route: 042
     Dates: start: 20120208
  2. REMICADE [Suspect]
     Indication: PSORIATIC ARTHROPATHY
     Route: 042
     Dates: start: 2008
  3. REMICADE [Suspect]
     Indication: PSORIATIC ARTHROPATHY
     Route: 042
     Dates: start: 2009
  4. METHOTREXATE [Suspect]
     Indication: PRODUCT USED FOR UNKNOWN INDICATION
     Route: 065
     Dates: end: 201111
  5. LIPITOR [Suspect]
     Indication: BLOOD CHOLESTEROL INCREASED
     Route: 065
  6. BENICAR [Suspect]
     Indication: HYPERTENSION
     Route: 065
     Dates: start: 2010, end: 201202
  7. SPIRONOLACTONE [Concomitant]
     Indication: BLOOD TESTOSTERONE ABNORMAL
     Route: 048
     Dates: start: 20120213
  8. SPIRONOLACTONE [Concomitant]
     Indication: HYPERTENSION
     Route: 048
     Dates: start: 20120213
  9. ZETIA [Concomitant]
     Indication: BLOOD CHOLESTEROL INCREASED
     Route: 048
     Dates: start: 2010
  10. NAPROXEN [Concomitant]
     Indication: PAIN
     Route: 048
     Dates: start: 2008
  11. SINGULAIR [Concomitant]
     Indication: ASTHMA
     Route: 048
     Dates: start: 2010
  12. ADVAIR [Concomitant]
     Indication: ASTHMA
     Dosage: 250/50
     Route: 055
     Dates: start: 2010
  13. METFORMIN [Concomitant]
     Indication: DIABETES MELLITUS
     Route: 048
     Dates: start: 2001
  14. NASONEX [Concomitant]
     Route: 065
  15. VITAMINS AND MINERALS [Concomitant]
     Route: 065

REACTIONS (19)
  - Cardiac murmur [Not Recovered/Not Resolved]
  - Musculoskeletal stiffness [Recovering/Resolving]
  - Menopause [Unknown]
  - Arthropathy [Unknown]
  - Back pain [Unknown]
  - Blood testosterone increased [Unknown]
  - Blood pressure fluctuation [Recovered/Resolved]
  - Body temperature increased [Recovered/Resolved]
  - Sleep apnoea syndrome [Unknown]
  - Hepatic enzyme abnormal [Unknown]
  - Diabetes mellitus [Unknown]
  - Breast disorder [Not Recovered/Not Resolved]
  - Adverse event [Unknown]
  - Infection [Recovered/Resolved]
  - Body height decreased [Not Recovered/Not Resolved]
  - Alopecia [Unknown]
  - Hair growth abnormal [Unknown]
  - Nasopharyngitis [Recovered/Resolved]
  - Seasonal allergy [Recovered/Resolved]
